FAERS Safety Report 14491134 (Version 4)
Quarter: 2024Q1

REPORT INFORMATION
  Report Type: Spontaneous
  Country: DE (occurrence: DE)
  Receive Date: 20180206
  Receipt Date: 20240122
  Transmission Date: 20240410
  Serious: Yes (Other)
  Sender: FDA-Public Use
  Company Number: DE-AUROBINDO-AUR-APL-2018-004577

PATIENT
  Age: 73 Year
  Sex: Male
  Weight: 70.5 kg

DRUGS (14)
  1. ASPIRIN [Interacting]
     Active Substance: ASPIRIN
     Indication: Coronary artery disease
     Dosage: 100 MILLIGRAM, ONCE A DAY
     Route: 048
     Dates: start: 20160613, end: 20170719
  2. CLOPIDOGREL [Interacting]
     Active Substance: CLOPIDOGREL BISULFATE
     Indication: Coronary artery disease
     Dosage: 75 MILLIGRAM, ONCE A DAY
     Route: 048
     Dates: start: 20160613, end: 20170719
  3. DABIGATRAN [Interacting]
     Active Substance: DABIGATRAN
     Indication: Atrial fibrillation
     Dosage: 110 MILLIGRAM, TWO TIMES A DAY
     Route: 048
     Dates: start: 201701
  4. MEGLUMINE [Suspect]
     Active Substance: MEGLUMINE
     Indication: Amyloidosis
     Dosage: DOSE: 20 OR 80 MG (1XDAY)
     Route: 065
     Dates: start: 20170704
  5. PRADAXA [Interacting]
     Active Substance: DABIGATRAN ETEXILATE MESYLATE
     Indication: Atrial fibrillation
     Dosage: 220 MILLIGRAM (110 MG, BID)
     Route: 048
     Dates: start: 201701
  6. GREEN TEA LEAF [Concomitant]
     Active Substance: GREEN TEA LEAF
     Indication: Amyloidosis
     Dosage: 4 DOSAGE FORM, ONCE A DAY
     Route: 065
  7. BISOPROLOL [Concomitant]
     Active Substance: BISOPROLOL\BISOPROLOL FUMARATE
     Indication: Hypertension
     Dosage: 7.5 MILLIGRAM, ONCE A DAY
     Route: 048
     Dates: start: 20160616
  8. MAGNESIUM [Concomitant]
     Active Substance: MAGNESIUM
     Indication: Magnesium deficiency
     Dosage: 300 MILLIGRAM, TWO TIMES A DAY
     Route: 048
     Dates: start: 20170101
  9. SPIRONOLACTONE [Concomitant]
     Active Substance: SPIRONOLACTONE
     Indication: Oedema
     Dosage: 50 MILLIGRAM, TWO TIMES A DAY
     Route: 065
     Dates: start: 20161129
  10. ALLOPURINOL [Concomitant]
     Active Substance: ALLOPURINOL
     Indication: Blood uric acid increased
     Dosage: 100 MILLIGRAM, ONCE A DAY
     Route: 048
     Dates: start: 20151118
  11. TORSEMIDE [Concomitant]
     Active Substance: TORSEMIDE
     Indication: Oedema
     Dosage: 10 MILLIGRAM, TWO TIMES A DAY
     Route: 048
     Dates: start: 201701
  12. CHOLECALCIFEROL [Concomitant]
     Active Substance: CHOLECALCIFEROL
     Indication: Vitamin D deficiency
     Dosage: 20000 INTERNATIONAL UNIT, EVERY 2 WEEKS
     Route: 048
     Dates: start: 20151122
  13. POTASSIUM CHLORIDE [Concomitant]
     Active Substance: POTASSIUM CHLORIDE
     Indication: Hypokalaemia
     Dosage: 1200 MILLIGRAM, 3 TIMES A DAY
     Route: 048
     Dates: start: 20161126
  14. CAMELLIA SINENSIS EXTRACT [Concomitant]
     Indication: Amyloidosis
     Dosage: 1 DOSAGE FORM, ONCE A DAY (4X/DAILY)
     Route: 048

REACTIONS (3)
  - Bleeding time prolonged [Recovered/Resolved]
  - Labelled drug-drug interaction medication error [Unknown]
  - Product administration error [Unknown]

NARRATIVE: CASE EVENT DATE: 20170717
